FAERS Safety Report 9349481 (Version 1)
Quarter: 2013Q2

REPORT INFORMATION
  Report Type: Spontaneous
  Country: US (occurrence: US)
  Receive Date: 20130614
  Receipt Date: 20130614
  Transmission Date: 20140414
  Serious: Yes (Hospitalization)
  Sender: FDA-Public Use
  Company Number: US-JNJFOC-20130604550

PATIENT
  Age: 15 Year
  Sex: Female

DRUGS (1)
  1. MOTRIN [Suspect]
     Indication: PRODUCT USED FOR UNKNOWN INDICATION
     Dosage: 20 PILLS
     Route: 048
     Dates: start: 20130605, end: 20130605

REACTIONS (2)
  - Suicide attempt [Recovering/Resolving]
  - Intentional overdose [Unknown]
